FAERS Safety Report 13913119 (Version 2)
Quarter: 2017Q3

REPORT INFORMATION
  Report Type: Spontaneous
  Country: US (occurrence: US)
  Receive Date: 20170828
  Receipt Date: 20170907
  Transmission Date: 20171127
  Serious: No
  Sender: FDA-Public Use
  Company Number: US-009507513-1708USA011153

PATIENT
  Age: 30 Year
  Sex: Female

DRUGS (1)
  1. NEXPLANON [Suspect]
     Active Substance: ETONOGESTREL
     Dosage: 1 ROD/3 YEARS
     Route: 059

REACTIONS (3)
  - Device deployment issue [Not Recovered/Not Resolved]
  - Complication associated with device [Recovered/Resolved]
  - Difficulty removing drug implant [Not Recovered/Not Resolved]

NARRATIVE: CASE EVENT DATE: 201708
